FAERS Safety Report 7294480-4 (Version None)
Quarter: 2011Q1

REPORT INFORMATION
  Report Type: 
  Country: None (occurrence: None)
  Receive Date: 20110216
  Receipt Date: 20110207
  Transmission Date: 20110831
  Serious: Yes (Hospitalization)
  Sender: FDA-Public Use
  Company Number: US-BIOGENIDEC-2006BI005210

PATIENT
  Age: 54 Year
  Sex: Female
  Weight: 68 kg

DRUGS (4)
  1. AVONEX [Suspect]
     Indication: MULTIPLE SCLEROSIS
     Route: 030
     Dates: start: 19990201, end: 20030801
  2. LISINOPRIL [Concomitant]
     Indication: HYPERTENSION
  3. AVONEX [Suspect]
     Route: 030
     Dates: start: 20030801
  4. HYDROCHLOROTHIAZIDE [Concomitant]
     Indication: HYPERTENSION

REACTIONS (7)
  - FALL [None]
  - GAIT DISTURBANCE [None]
  - SCAR [None]
  - AMNESIA [None]
  - BALANCE DISORDER [None]
  - HYPERTENSION [None]
  - WRIST FRACTURE [None]
